FAERS Safety Report 5717063-3 (Version None)
Quarter: 2008Q2

REPORT INFORMATION
  Report Type: 
  Country: None (occurrence: None)
  Receive Date: 20080423
  Receipt Date: 20080409
  Transmission Date: 20081010
  Serious: Yes (Hospitalization)
  Sender: FDA-Public Use
  Company Number: 2008IP000019

PATIENT
  Age: 82 Year
  Sex: Male
  Weight: 68.0396 kg

DRUGS (3)
  1. XIBROM [Suspect]
     Indication: CATARACT OPERATION
     Dosage: 1 GTT; BID; OPH
     Route: 047
     Dates: start: 20080316, end: 20080405
  2. ZYMAR [Concomitant]
  3. PRED FORTE [Concomitant]

REACTIONS (4)
  - ASTHMA [None]
  - CARDIAC ASTHMA [None]
  - CONDITION AGGRAVATED [None]
  - TREATMENT NONCOMPLIANCE [None]
